FAERS Safety Report 7523483-7 (Version None)
Quarter: 2011Q2

REPORT INFORMATION
  Report Type: 
  Country: None (occurrence: None)
  Receive Date: 20110603
  Receipt Date: 20091203
  Transmission Date: 20111010
  Serious: Yes (Death, Other)
  Sender: FDA-Public Use
  Company Number: US-BAYER-200941586NA

PATIENT
  Age: 78 Year
  Sex: Male
  Weight: 107 kg

DRUGS (19)
  1. PLAVIX [Concomitant]
     Dosage: 75 MG, QD
     Route: 048
  2. PRILOSEC [Concomitant]
     Dosage: 20 MG, QD
     Route: 048
  3. CIPRO [Concomitant]
     Indication: URINARY TRACT INFECTION
     Dosage: 250 MG, BID
     Route: 048
  4. MANNITOL [Concomitant]
     Dosage: 50 ML, UNK
     Route: 042
     Dates: start: 20050830, end: 20050830
  5. CARDIZEM [Concomitant]
     Dosage: 40ML PER HOUR
     Route: 042
     Dates: start: 20050830, end: 20050830
  6. WARFARIN SODIUM [Concomitant]
     Dosage: 5 MG, QD
     Route: 048
  7. TRASYLOL [Suspect]
     Indication: CORONARY ARTERY BYPASS
     Dosage: 200 ML, ONCE, PUMP PRIME
     Route: 042
     Dates: start: 20050830, end: 20050830
  8. DEPAKOTE [Concomitant]
     Dosage: 250MG 4 TIMES DAILY
     Route: 048
  9. ACETYLSALICYLIC ACID SRT [Concomitant]
     Dosage: 325 MG, QD
     Route: 048
  10. ENALAPRIL MALEATE [Concomitant]
     Dosage: 5 MG, QD
     Route: 048
  11. LASIX [Concomitant]
     Dosage: 40 MG, QD
     Route: 048
  12. DOBUTAMINE HYDROCHLORIDE [Concomitant]
  13. DOPAMINE HCL [Concomitant]
  14. PLATELETS [Concomitant]
     Dosage: 1 U, ONCE
     Route: 042
     Dates: start: 20050830
  15. LOVASTATIN [Concomitant]
     Dosage: 20 MG, QD
     Dates: start: 20050825, end: 20050829
  16. TRASYLOL [Suspect]
     Dosage: 25 CC/HR INFUSION
     Route: 042
     Dates: start: 20050830, end: 20050830
  17. GEMFIBROZIL [Concomitant]
     Dosage: 600 MG, BID
     Dates: start: 20050825, end: 20050829
  18. COZAAR [Concomitant]
     Dosage: 50 MG, BID
     Route: 048
  19. RED BLOOD CELLS [Concomitant]
     Dosage: 3 U, ONCE
     Route: 042
     Dates: start: 20050830

REACTIONS (13)
  - INJURY [None]
  - DEATH [None]
  - STRESS [None]
  - UNEVALUABLE EVENT [None]
  - RENAL FAILURE [None]
  - MULTI-ORGAN FAILURE [None]
  - RENAL IMPAIRMENT [None]
  - ANXIETY [None]
  - FEAR [None]
  - PAIN [None]
  - ANHEDONIA [None]
  - RENAL INJURY [None]
  - EMOTIONAL DISTRESS [None]
